FAERS Safety Report 13138732 (Version 8)
Quarter: 2017Q3

REPORT INFORMATION
  Report Type: Spontaneous
  Country: US (occurrence: US)
  Receive Date: 20170123
  Receipt Date: 20170705
  Transmission Date: 20171127
  Serious: No
  Sender: FDA-Public Use
  Company Number: US-PFIZER INC-2017025067

PATIENT
  Age: 65 Year
  Sex: Male
  Weight: 70.98 kg

DRUGS (4)
  1. SUTENT [Suspect]
     Active Substance: SUNITINIB MALATE
     Dosage: 50 MG, CYCLIC (DAY 1-14 Q 21 DAYS)
     Route: 048
  2. SUTENT [Suspect]
     Active Substance: SUNITINIB MALATE
     Dosage: UNK, CYCLIC
     Dates: start: 20170318, end: 2017
  3. SUTENT [Suspect]
     Active Substance: SUNITINIB MALATE
     Indication: RENAL CELL CARCINOMA
     Dosage: 50 MG, CYCLIC (DAYS 1-14 EVERY 21 DAYS)/(1D-14D Q 21 D)/(D1-D7, D15-21 Q28 D)
     Route: 048
     Dates: start: 20170114
  4. SUTENT [Suspect]
     Active Substance: SUNITINIB MALATE
     Indication: LUNG NEOPLASM MALIGNANT
     Dosage: 50 MG, CYCLIC (DAY 1-7 Q 14 DAYS)
     Route: 048
     Dates: start: 20170114

REACTIONS (18)
  - Rhinorrhoea [Unknown]
  - Fatigue [Unknown]
  - Nausea [Unknown]
  - Neoplasm progression [Unknown]
  - Decreased appetite [Recovering/Resolving]
  - Dysphagia [Recovering/Resolving]
  - Diarrhoea [Not Recovered/Not Resolved]
  - Oral pain [Unknown]
  - Gait disturbance [Unknown]
  - Dyspnoea [Unknown]
  - Intentional product misuse [Unknown]
  - Nasopharyngitis [Unknown]
  - Dry skin [Unknown]
  - Gastrooesophageal reflux disease [Unknown]
  - Fall [Unknown]
  - Muscular weakness [Unknown]
  - Rash [Unknown]
  - Pain [Unknown]

NARRATIVE: CASE EVENT DATE: 20170609
